FAERS Safety Report 9336520 (Version 3)
Quarter: 2013Q3

REPORT INFORMATION
  Report Type: Spontaneous
  Country: FR (occurrence: FR)
  Receive Date: 20130607
  Receipt Date: 20130703
  Transmission Date: 20140515
  Serious: Yes (Hospitalization)
  Sender: FDA-Public Use
  Company Number: FR-BAYER-2013-067891

PATIENT
  Age: 63 Year
  Sex: Female
  Weight: 55 kg

DRUGS (9)
  1. GADOVIST [Suspect]
     Indication: NUCLEAR MAGNETIC RESONANCE IMAGING BRAIN
     Dosage: 5.5 ML, UNK
     Route: 042
     Dates: start: 20130529, end: 20130529
  2. BETADINE [Concomitant]
     Route: 003
  3. LEVOTHYROX [Concomitant]
     Route: 048
  4. TENORMINE [Concomitant]
     Route: 048
  5. TAHOR [Concomitant]
     Route: 048
  6. ZYLORIC [Concomitant]
     Route: 048
  7. RANIPLEX [Concomitant]
     Route: 048
  8. XANAX [Concomitant]
     Route: 048
  9. SOLUMEDROL [Concomitant]
     Dosage: UNK
     Route: 042
     Dates: start: 20130526, end: 20130529

REACTIONS (5)
  - Dysphonia [Recovered/Resolved]
  - Dry mouth [Recovered/Resolved]
  - Conjunctival oedema [Recovered/Resolved]
  - Dyspnoea [Recovered/Resolved]
  - Product quality issue [None]
